FAERS Safety Report 5917021-X (Version None)
Quarter: 2008Q4

REPORT INFORMATION
  Report Type: 
  Country: None (occurrence: None)
  Receive Date: 20081010
  Receipt Date: 20081010
  Transmission Date: 20090506
  Serious: Yes (Disabling, Other)
  Sender: FDA-Public Use
  Company Number: None

PATIENT
  Age: 69 Year
  Sex: Female
  Weight: 40.3701 kg

DRUGS (3)
  1. PLAVIX [Suspect]
     Indication: CEREBROVASCULAR ACCIDENT
     Dosage: 75 MG / DAILY 1 DAILY
     Dates: start: 20050601
  2. POTASSIUM CHLORIDE [Concomitant]
  3. LASIKS [Concomitant]

REACTIONS (6)
  - BLOOD DISORDER [None]
  - CONTUSION [None]
  - FOOD INTOLERANCE [None]
  - GASTRIC DISORDER [None]
  - MUSCLE SPASMS [None]
  - WEIGHT DECREASED [None]
